FAERS Safety Report 7314275-2 (Version None)
Quarter: 2011Q1

REPORT INFORMATION
  Report Type: 
  Country: None (occurrence: None)
  Receive Date: 20110225
  Receipt Date: 20100722
  Transmission Date: 20110831
  Serious: No
  Sender: FDA-Public Use
  Company Number: US-MYLANLABS-2010S1011878

PATIENT
  Age: 15 Year
  Sex: Male
  Weight: 97.07 kg

DRUGS (2)
  1. RITALIN LA [Concomitant]
  2. AMNESTEEM [Suspect]
     Indication: ACNE
     Route: 048
     Dates: start: 20100201, end: 20100601

REACTIONS (2)
  - PITYRIASIS ROSEA [None]
  - LIP OEDEMA [None]
